FAERS Safety Report 10705704 (Version 1)
Quarter: 2015Q1

REPORT INFORMATION
  Report Type: Spontaneous
  Country: US (occurrence: US)
  Receive Date: 20150112
  Receipt Date: 20150112
  Transmission Date: 20150721
  Serious: Yes (Hospitalization, Other)
  Sender: FDA-Public Use
  Company Number: US-GLAXOSMITHKLINE-US2014GSK046615

PATIENT
  Sex: Female

DRUGS (1)
  1. LAMICTAL [Suspect]
     Active Substance: LAMOTRIGINE
     Indication: SEIZURE
     Dosage: UNK
     Route: 065
     Dates: start: 201011

REACTIONS (7)
  - Seizure [Unknown]
  - Brain neoplasm [Unknown]
  - Drug ineffective [Unknown]
  - Loss of consciousness [Unknown]
  - Road traffic accident [Unknown]
  - Surgery [Unknown]
  - Unable to afford prescribed medication [Unknown]
